FAERS Safety Report 4380246-1 (Version None)
Quarter: 2004Q2

REPORT INFORMATION
  Report Type: 
  Country: None (occurrence: None)
  Receive Date: 20040616
  Receipt Date: 20040616
  Transmission Date: 20050107
  Serious: No
  Sender: FDA-Public Use
  Company Number: None

PATIENT
  Age: 34 Year
  Sex: Female
  Weight: 65.7716 kg

DRUGS (2)
  1. METFORMIN HCL [Suspect]
     Indication: INSULIN RESISTANCE
     Dosage: 1 2XDAY ORAL
     Route: 048
     Dates: start: 20040602, end: 20040605
  2. ACYCLOVIR [Suspect]

REACTIONS (1)
  - MEDICATION ERROR [None]
